FAERS Safety Report 7584195-7 (Version None)
Quarter: 2011Q2

REPORT INFORMATION
  Report Type: 
  Country: None (occurrence: None)
  Receive Date: 20110630
  Receipt Date: 20110627
  Transmission Date: 20111010
  Serious: Yes (Other)
  Sender: FDA-Public Use
  Company Number: PE-GILEAD-2011-0036144

PATIENT
  Sex: Male
  Weight: 82.2 kg

DRUGS (5)
  1. EMTRICITABINE AND TENOFOVIR DISOPROXIL FUMARATE [Suspect]
     Indication: HIV INFECTION
     Route: 048
     Dates: start: 20070903, end: 20070912
  2. NAPROXEN [Concomitant]
     Indication: PHARYNGOTONSILLITIS
     Dates: start: 20071003, end: 20071007
  3. AZITHROMYCIN [Concomitant]
     Indication: OROPHARYNGEAL PAIN
     Dates: start: 20071106, end: 20071107
  4. CHLOR-TRIMETON [Concomitant]
     Indication: URTICARIA
     Dates: start: 20070927, end: 20070929
  5. ACYCLOVIR [Concomitant]
     Indication: ORAL HERPES
     Dates: start: 20070810, end: 20070817

REACTIONS (1)
  - BLOOD PHOSPHORUS DECREASED [None]
